FAERS Safety Report 10250993 (Version 2)
Quarter: 2014Q3

REPORT INFORMATION
  Report Type: Report from Study
  Country: DE (occurrence: DE)
  Receive Date: 20140620
  Receipt Date: 20140818
  Transmission Date: 20150326
  Serious: Yes (Other)
  Sender: FDA-Public Use
  Company Number: DE-TEVA-489368USA

PATIENT
  Age: 80 Year
  Sex: Male

DRUGS (8)
  1. BENDAMUSTINE [Suspect]
     Active Substance: BENDAMUSTINE
     Indication: PLASMA CELL MYELOMA
     Dosage: ONCE DAILY
     Route: 065
     Dates: start: 20130514, end: 20130515
  2. BENDAMUSTINE [Suspect]
     Active Substance: BENDAMUSTINE
     Dosage: UNK, UNKNOWN FREQ.
     Route: 065
     Dates: start: 20130612
  3. DOXORUBICIN [Suspect]
     Active Substance: DOXORUBICIN
     Dosage: UNK, UNKNOWN FREQ.
     Route: 042
     Dates: start: 20130801
  4. DOXORUBICIN [Suspect]
     Active Substance: DOXORUBICIN
     Indication: PLASMA CELL MYELOMA
     Route: 042
     Dates: start: 20130705
  5. VELCADE [Suspect]
     Active Substance: BORTEZOMIB
     Dosage: UNK, UNKNOWN FREQ.
     Route: 065
     Dates: start: 20121015
  6. VELCADE [Suspect]
     Active Substance: BORTEZOMIB
     Dosage: UNK, UNKNOWN FREQ.
     Route: 065
     Dates: start: 20121213
  7. VELCADE [Suspect]
     Active Substance: BORTEZOMIB
     Indication: PLASMA CELL MYELOMA
     Route: 065
     Dates: start: 20121011
  8. VELCADE [Suspect]
     Active Substance: BORTEZOMIB
     Route: 065
     Dates: start: 20130131

REACTIONS (15)
  - Cough [Recovered/Resolved]
  - Constipation [Not Recovered/Not Resolved]
  - Tremor [Recovered/Resolved]
  - Polyneuropathy [Not Recovered/Not Resolved]
  - Muscle spasms [Recovered/Resolved]
  - Petechiae [Recovered/Resolved]
  - Erythema [Recovered/Resolved]
  - Leukopenia [Not Recovered/Not Resolved]
  - Dyspnoea [Recovered/Resolved]
  - Weight decreased [Recovered/Resolved]
  - Fatigue [Not Recovered/Not Resolved]
  - Thrombocytopenia [Recovered/Resolved]
  - Pancytopenia [Recovered/Resolved]
  - Urinary tract infection [Recovered/Resolved]
  - Vertigo [Unknown]

NARRATIVE: CASE EVENT DATE: 20130514
